FAERS Safety Report 21873023 (Version 1)
Quarter: 2023Q1

REPORT INFORMATION
  Report Type: Spontaneous
  Country: GR (occurrence: GR)
  Receive Date: 20230117
  Receipt Date: 20230117
  Transmission Date: 20230417
  Serious: Yes (Hospitalization, Other)
  Sender: FDA-Public Use
  Company Number: GR-BRISTOL-MYERS SQUIBB COMPANY-2023-006575

PATIENT
  Age: 42 Year
  Sex: Female

DRUGS (2)
  1. LUSPATERCEPT [Suspect]
     Active Substance: LUSPATERCEPT
     Indication: Product used for unknown indication
  2. YASMINELE [Concomitant]
     Indication: Product used for unknown indication

REACTIONS (2)
  - Autoimmune haemolytic anaemia [Unknown]
  - Infarction [Recovered/Resolved]

NARRATIVE: CASE EVENT DATE: 20221219
